FAERS Safety Report 20313175 (Version 1)
Quarter: 2022Q1

REPORT INFORMATION
  Report Type: Spontaneous
  Country: IN (occurrence: IN)
  Receive Date: 20220109
  Receipt Date: 20220109
  Transmission Date: 20220424
  Serious: Yes (Other)
  Sender: FDA-Public Use
  Company Number: IN-SA-SAC20211206001013

PATIENT
  Age: 21 Year
  Sex: Female
  Weight: 44 kg

DRUGS (3)
  1. CEREZYME [Suspect]
     Active Substance: IMIGLUCERASE
     Indication: Gaucher^s disease
     Dosage: UNK
     Dates: start: 20210429
  2. CEREZYME [Suspect]
     Active Substance: IMIGLUCERASE
     Dosage: 60 MG/KG, QOW
     Route: 042
     Dates: start: 20210924
  3. IRON + FOLIC ACID [Concomitant]
     Indication: Pregnancy
     Dosage: 30 MG IRON AND 400 MICROG FOLIC ACID
     Route: 048
     Dates: start: 20210420

REACTIONS (2)
  - Haemorrhage in pregnancy [Unknown]
  - Exposure during pregnancy [Unknown]
